FAERS Safety Report 17218435 (Version 1)
Quarter: 2020Q1

REPORT INFORMATION
  Report Type: Spontaneous
  Country: US (occurrence: US)
  Receive Date: 20191230
  Receipt Date: 20191230
  Transmission Date: 20200409
  Serious: Yes (Hospitalization, Disabling, Other)
  Sender: FDA-Public Use
  Company Number: None

PATIENT
  Age: 31 Year
  Sex: Male
  Weight: 138.6 kg

DRUGS (9)
  1. HUMIRA [Suspect]
     Active Substance: ADALIMUMAB
     Indication: HIDRADENITIS
     Dosage: ?          OTHER ROUTE:INJECTION?
     Dates: start: 20190815, end: 20191031
  2. CLONAZEPAM. [Concomitant]
     Active Substance: CLONAZEPAM
  3. ZANTAC [Concomitant]
     Active Substance: RANITIDINE HYDROCHLORIDE
  4. LAMICTAL [Concomitant]
     Active Substance: LAMOTRIGINE
  5. HUMIRA [Suspect]
     Active Substance: ADALIMUMAB
     Indication: ARTHRITIS
     Dosage: ?          OTHER ROUTE:INJECTION?
     Dates: start: 20190815, end: 20191031
  6. MULTIVITAMIN [Concomitant]
     Active Substance: VITAMINS
  7. BENZOTROPINE [Concomitant]
     Active Substance: BENZTROPINE
  8. ATENOLOL. [Concomitant]
     Active Substance: ATENOLOL
  9. LITHIUM CARBONATE. [Concomitant]
     Active Substance: LITHIUM CARBONATE

REACTIONS (1)
  - Mania [None]

NARRATIVE: CASE EVENT DATE: 20191031
